FAERS Safety Report 5830010-9 (Version None)
Quarter: 2008Q3

REPORT INFORMATION
  Report Type: 
  Country: None (occurrence: None)
  Receive Date: 20080801
  Receipt Date: 20080728
  Transmission Date: 20090109
  Serious: Yes (Other)
  Sender: FDA-Public Use
  Company Number: US-JNJCH-2008019727

PATIENT
  Age: 54 Year
  Sex: Female
  Weight: 55.8 kg

DRUGS (1)
  1. LISTERINE WHITENING PRE-BRUSH RINSE [Suspect]
     Indication: DENTAL CARE
     Dosage: TEXT:NOT EVEN A QUARTER FULL ONCE
     Route: 048
     Dates: start: 20080727, end: 20080727

REACTIONS (3)
  - APPLICATION SITE BURN [None]
  - ORAL PAIN [None]
  - STOMATITIS [None]
